FAERS Safety Report 8305187-6 (Version None)
Quarter: 2012Q2

REPORT INFORMATION
  Report Type: 
  Country: None (occurrence: None)
  Receive Date: 20120418
  Receipt Date: 20120411
  Transmission Date: 20120825
  Serious: Yes (Other)
  Sender: FDA-Public Use
  Company Number: 2012040072

PATIENT
  Age: 61 Year
  Sex: Male

DRUGS (1)
  1. MESALAMINE [Suspect]
     Indication: COLITIS MICROSCOPIC

REACTIONS (4)
  - DISEASE RECURRENCE [None]
  - COLITIS MICROSCOPIC [None]
  - HEPATIC ENZYME INCREASED [None]
  - TUBULOINTERSTITIAL NEPHRITIS [None]
